FAERS Safety Report 7557814-9 (Version None)
Quarter: 2011Q2

REPORT INFORMATION
  Report Type: 
  Country: None (occurrence: None)
  Receive Date: 20110620
  Receipt Date: 20110613
  Transmission Date: 20111010
  Serious: Yes (Life-Threatening, Hospitalization, Other)
  Sender: FDA-Public Use
  Company Number: AT-BRISTOL-MYERS SQUIBB COMPANY-15217755

PATIENT
  Age: 76 Year
  Sex: Female

DRUGS (6)
  1. PLACEBO [Suspect]
     Indication: THROMBOSIS PROPHYLAXIS
     Route: 048
     Dates: start: 20091027, end: 20100725
  2. ARIMIDEX [Concomitant]
     Dates: start: 20070101, end: 20100810
  3. WARFARIN SODIUM [Suspect]
     Indication: THROMBOSIS PROPHYLAXIS
     Route: 048
     Dates: start: 20091027, end: 20100725
  4. HEPARIN [Concomitant]
     Dates: start: 20100731, end: 20100902
  5. ASPIRIN [Concomitant]
     Dates: start: 20070101
  6. LOVENOX [Concomitant]
     Dates: start: 20100731, end: 20100902

REACTIONS (4)
  - TRANSIENT ISCHAEMIC ATTACK [None]
  - PULMONARY EMBOLISM [None]
  - SUBARACHNOID HAEMORRHAGE [None]
  - DEEP VEIN THROMBOSIS [None]
